FAERS Safety Report 7236603-9 (Version None)
Quarter: 2011Q1

REPORT INFORMATION
  Report Type: 
  Country: None (occurrence: None)
  Receive Date: 20110120
  Receipt Date: 20110119
  Transmission Date: 20110831
  Serious: Yes (Death, Hospitalization)
  Sender: FDA-Public Use
  Company Number: CA-ABBOTT-10P-028-0676723-00

PATIENT
  Sex: Male
  Weight: 75.818 kg

DRUGS (1)
  1. LUPRON DEPOT [Suspect]
     Indication: PROSTATE CANCER
     Dates: start: 20100104, end: 20101005

REACTIONS (3)
  - ASTHENIA [None]
  - DIARRHOEA [None]
  - DECREASED APPETITE [None]
